FAERS Safety Report 4403851-2 (Version None)
Quarter: 2004Q3

REPORT INFORMATION
  Report Type: 
  Country: None (occurrence: None)
  Receive Date: 20040719
  Receipt Date: 20040709
  Transmission Date: 20050211
  Serious: Yes (Death, Hospitalization)
  Sender: FDA-Public Use
  Company Number: 03P-056-0207677-00

PATIENT
  Age: 75 Year
  Sex: Female
  Weight: 59 kg

DRUGS (3)
  1. VERCYTE [Suspect]
     Indication: POLYCYTHAEMIA
     Dosage: SEE IMAGE
     Route: 048
     Dates: start: 20010419, end: 20010603
  2. VERCYTE [Suspect]
     Indication: POLYCYTHAEMIA
     Dosage: SEE IMAGE
     Route: 048
     Dates: start: 20010604, end: 20010615
  3. ACUILIX [Concomitant]

REACTIONS (22)
  - ASCITES [None]
  - ASTHENIA [None]
  - BONE MARROW DEPRESSION [None]
  - CHILLS [None]
  - CHROMATURIA [None]
  - COAGULATION FACTOR DECREASED [None]
  - CYTOLYTIC HEPATITIS [None]
  - ESCHERICHIA INFECTION [None]
  - HEPATIC ENCEPHALOPATHY [None]
  - HEPATIC FUNCTION ABNORMAL [None]
  - HYPERTHERMIA [None]
  - HYPOTENSION [None]
  - JAUNDICE [None]
  - LIVER DISORDER [None]
  - LUNG DISORDER [None]
  - MALAISE [None]
  - PNEUMOCOCCAL INFECTION [None]
  - PORTAL HYPERTENSION [None]
  - RENAL FAILURE ACUTE [None]
  - SEPTIC SHOCK [None]
  - SKIN DISCOLOURATION [None]
  - SOMNOLENCE [None]
